FAERS Safety Report 21804401 (Version 2)
Quarter: 2023Q1

REPORT INFORMATION
  Report Type: Spontaneous
  Country: BE (occurrence: BE)
  Receive Date: 20230102
  Receipt Date: 20230119
  Transmission Date: 20230417
  Serious: Yes (Hospitalization, Other)
  Sender: FDA-Public Use
  Company Number: BE-ORGANON-O2212BEL001850

PATIENT
  Sex: Male
  Weight: 59.5 kg

DRUGS (43)
  1. UPADACITINIB [Suspect]
     Active Substance: UPADACITINIB
     Indication: Dermatitis atopic
     Dosage: UNK
     Route: 048
     Dates: start: 20191230, end: 20221122
  2. UPADACITINIB [Suspect]
     Active Substance: UPADACITINIB
     Indication: Dermatitis atopic
     Dosage: UNK
     Route: 048
     Dates: start: 20190902, end: 20191229
  3. LORMETAZEPAM [Concomitant]
     Active Substance: LORMETAZEPAM
     Indication: Depressed mood
     Dosage: 2 MILLIGRAM, EVERY 1 DAYS
     Dates: start: 20220705
  4. RUPATALL [Concomitant]
     Indication: Pruritus
     Dosage: 10 MG, EVERY 1 DAYS
     Dates: start: 20190128
  5. DIMETHINDENE [Concomitant]
     Active Substance: DIMETHINDENE
     Indication: Pruritus
     Dosage: 30 DROPS, AS NECESSARY
     Dates: start: 20191002
  6. SPIRONOLACTONE [Concomitant]
     Active Substance: SPIRONOLACTONE
     Indication: Bundle branch block left
     Dosage: 25 MG, EVERY 1 DAYS
     Dates: start: 20220119
  7. MOMETASONE FUROATE [Suspect]
     Active Substance: MOMETASONE FUROATE
     Indication: Dermatitis atopic
     Dosage: 0.1%, 2/DAYS
     Route: 065
     Dates: start: 20191002, end: 20191008
  8. MOMETASONE FUROATE [Suspect]
     Active Substance: MOMETASONE FUROATE
     Indication: Dermatitis atopic
     Dosage: 0.1%, EVERY 1 DAYS
     Route: 065
     Dates: start: 20191009, end: 20191015
  9. ACETAMINOPHEN [Concomitant]
     Active Substance: ACETAMINOPHEN
     Indication: Restless legs syndrome
     Dosage: 1 G, AS NECESSARY
     Dates: start: 2013
  10. COVERAM [Concomitant]
     Active Substance: AMLODIPINE\PERINDOPRIL
     Indication: Hypertension
     Dosage: 10/10 MG, EVERY 1 DAYS
     Dates: start: 20220119
  11. CETAPHIL DAILY FACIAL MOISTURIZER WITH SUNCREEN SPF 50 [Concomitant]
     Active Substance: OCTINOXATE\OCTISALATE\OCTOCRYLENE\OXYBENZONE\TITANIUM DIOXIDE
     Indication: Prophylaxis
     Dosage: 1 APPLICATION, AS NECESSARY? [CETYL ALCOHOL;PROPYLENE GLYCOL;SODIUM LAURYL SULFATE;STEARYL ALCOHOL]
     Dates: start: 20191002
  12. PRAMIPEXOLE [Concomitant]
     Active Substance: PRAMIPEXOLE
     Indication: Restless legs syndrome
     Dosage: 0.18 MILLIGRAM, EVERY 1 DAYS
     Dates: start: 20200928
  13. BETAMETHASONE DIPROPIONATE [Suspect]
     Active Substance: BETAMETHASONE DIPROPIONATE
     Indication: Dermatitis atopic
     Dosage: 0.064 %, 3/WEEKS
     Route: 065
     Dates: start: 20220414, end: 20220824
  14. BETAMETHASONE DIPROPIONATE [Suspect]
     Active Substance: BETAMETHASONE DIPROPIONATE
     Indication: Dermatitis atopic
     Dosage: 0.05%, EVERY 1 DAYS
     Route: 065
     Dates: start: 20191016, end: 20191028
  15. BETAMETHASONE DIPROPIONATE [Suspect]
     Active Substance: BETAMETHASONE DIPROPIONATE
     Indication: Dermatitis atopic
     Dosage: 0.05%, 2/DAYS
     Route: 065
     Dates: start: 20191002, end: 20191008
  16. BETAMETHASONE DIPROPIONATE [Suspect]
     Active Substance: BETAMETHASONE DIPROPIONATE
     Indication: Dermatitis atopic
     Dosage: 0.064%, EVERY 1 DAYS
     Route: 065
     Dates: start: 20210428, end: 20210509
  17. BETAMETHASONE DIPROPIONATE [Suspect]
     Active Substance: BETAMETHASONE DIPROPIONATE
     Indication: Dermatitis atopic
     Dosage: 0.064%, EVERY 1 DAYS
     Route: 065
     Dates: start: 20210807, end: 20211027
  18. BETAMETHASONE DIPROPIONATE [Suspect]
     Active Substance: BETAMETHASONE DIPROPIONATE
     Indication: Dermatitis atopic
     Dosage: 0.064%, EVERY 1 DAYS
     Route: 065
     Dates: start: 20210510, end: 20210803
  19. BETAMETHASONE DIPROPIONATE [Suspect]
     Active Substance: BETAMETHASONE DIPROPIONATE
     Indication: Dermatitis atopic
     Dosage: 0.064%, 2/WEEKS
     Route: 065
     Dates: start: 20211028, end: 20220401
  20. BETAMETHASONE DIPROPIONATE [Suspect]
     Active Substance: BETAMETHASONE DIPROPIONATE
     Indication: Dermatitis atopic
     Dosage: 0.05%, 2/DAYS
     Route: 065
     Dates: start: 20191001, end: 20191002
  21. BETAMETHASONE DIPROPIONATE [Suspect]
     Active Substance: BETAMETHASONE DIPROPIONATE
     Indication: Dermatitis atopic
     Dosage: 0.05%, EVERY 1 DAYS
     Route: 065
     Dates: start: 20191009, end: 20191015
  22. UREUM [Concomitant]
     Indication: Dry skin prophylaxis
     Dosage: 5 % COLD CREAM, 2/DAYS
     Dates: start: 20200907
  23. TRIAMCINOLONE ACETONIDE [Suspect]
     Active Substance: TRIAMCINOLONE ACETONIDE
     Indication: Dermatitis atopic
     Dosage: 0.1%, EVERY 1 DAYS
     Route: 065
     Dates: start: 20191001, end: 20191002
  24. TRIAMCINOLONE ACETONIDE [Suspect]
     Active Substance: TRIAMCINOLONE ACETONIDE
     Indication: Dermatitis atopic
     Dosage: UNK UNK, QW
     Route: 065
     Dates: start: 20220402, end: 20220411
  25. TRIAMCINOLONE ACETONIDE [Suspect]
     Active Substance: TRIAMCINOLONE ACETONIDE
     Indication: Dermatitis atopic
     Dosage: 0.1 %, EVERY 1 DAYS
     Route: 065
     Dates: start: 20190902, end: 20190923
  26. TRIAMCINOLONE ACETONIDE [Suspect]
     Active Substance: TRIAMCINOLONE ACETONIDE
     Indication: Dermatitis atopic
     Dosage: 0.1%, EVERY 1 DAYS
     Route: 065
     Dates: start: 20191223, end: 20200113
  27. TRIAMCINOLONE ACETONIDE [Suspect]
     Active Substance: TRIAMCINOLONE ACETONIDE
     Indication: Dermatitis atopic
     Dosage: 0.1%, 3/WEEKS
     Route: 065
     Dates: start: 20220720, end: 20220811
  28. TRIAMCINOLONE ACETONIDE [Suspect]
     Active Substance: TRIAMCINOLONE ACETONIDE
     Indication: Dermatitis atopic
     Dosage: 0.1%, 2/ DAYS
     Route: 065
     Dates: start: 20191125, end: 20191215
  29. TRIAMCINOLONE ACETONIDE [Suspect]
     Active Substance: TRIAMCINOLONE ACETONIDE
     Indication: Dermatitis atopic
     Dosage: 0.1%, EVERY 1 DAYS
     Route: 065
     Dates: start: 20191016, end: 20191106
  30. TRIAMCINOLONE ACETONIDE [Suspect]
     Active Substance: TRIAMCINOLONE ACETONIDE
     Indication: Dermatitis atopic
     Dosage: 0.1%, EVERY 1 DAYS
     Route: 065
     Dates: start: 20191125, end: 20191215
  31. TRIAMCINOLONE ACETONIDE [Suspect]
     Active Substance: TRIAMCINOLONE ACETONIDE
     Indication: Dermatitis atopic
     Dosage: 0.1%, EVERY 1 DAYS
     Route: 065
     Dates: start: 20210127, end: 20210130
  32. TRIAMCINOLONE ACETONIDE [Suspect]
     Active Substance: TRIAMCINOLONE ACETONIDE
     Indication: Dermatitis atopic
     Dosage: 0.1%, 3/WEEKS
     Route: 065
     Dates: start: 20191223, end: 20200113
  33. TRIAMCINOLONE ACETONIDE [Suspect]
     Active Substance: TRIAMCINOLONE ACETONIDE
     Indication: Dermatitis atopic
     Dosage: 0.1%, EVERY 2 DAYS
     Route: 065
     Dates: start: 20201208, end: 20201217
  34. ATARAX [Concomitant]
     Active Substance: HYDROXYZINE HYDROCHLORIDE
     Indication: Pruritus
     Dosage: 25 MILLIGRAM, AS NECESSARY
     Dates: start: 200609
  35. ESCITALOPRAM OXALATE [Concomitant]
     Active Substance: ESCITALOPRAM OXALATE
     Indication: Mood altered
     Dosage: 10 MILLIGRAM, EVERY 1 DAYS
     Dates: start: 20220701
  36. LOCOID CRELO [Concomitant]
     Indication: Dermatitis atopic
     Dosage: 1 APPLICATION, 2/WEEKS
     Dates: start: 202101
  37. STEOVIT FORTE [Concomitant]
     Indication: Osteonecrosis
     Dosage: 1G, EVERY 1 DAYS
     Dates: start: 20190129
  38. BISOPROLOL [Concomitant]
     Active Substance: BISOPROLOL
     Indication: Bundle branch block left
     Dosage: 5 MILLIGRAM, EVERY 1 DAYS? [BISOPROLOL FUMARATE]
     Dates: start: 20220119
  39. LEVOCETIRIZINE DIHYDROCHLORIDE [Concomitant]
     Active Substance: LEVOCETIRIZINE DIHYDROCHLORIDE
     Indication: Rhinitis
     Dosage: 5 MG, EVERY 1 DAYS
     Dates: start: 20190128
  40. HYDROCORTISONE [Suspect]
     Active Substance: HYDROCORTISONE
     Indication: Dermatitis atopic
     Dosage: 1 %, EVERY 1 DAYS
     Route: 065
     Dates: start: 20191216, end: 20191223
  41. HYDROCORTISONE [Suspect]
     Active Substance: HYDROCORTISONE
     Indication: Dermatitis atopic
     Dosage: 1%, EVERY 1 DAYS
     Route: 065
     Dates: start: 20190902, end: 20190930
  42. HYDROCORTISONE [Suspect]
     Active Substance: HYDROCORTISONE
     Indication: Dermatitis atopic
     Dosage: 1 %, EVERY 1 DAYS
     Route: 065
     Dates: start: 20191117, end: 20191124
  43. HYDROCORTISONE [Suspect]
     Active Substance: HYDROCORTISONE
     Indication: Dermatitis atopic
     Dosage: 1 %, AS NECESSARY
     Route: 065
     Dates: start: 20200114

REACTIONS (10)
  - Visual impairment [Unknown]
  - Herpes ophthalmic [Not Recovered/Not Resolved]
  - SARS-CoV-2 test positive [Unknown]
  - Conjunctivitis bacterial [Unknown]
  - Wrist fracture [Unknown]
  - Suicidal ideation [Unknown]
  - Osteonecrosis [Unknown]
  - Conjunctivitis [Unknown]
  - Aortic dissection [Unknown]
  - Noninfective conjunctivitis [Unknown]

NARRATIVE: CASE EVENT DATE: 20191029
